FAERS Safety Report 6534906-4 (Version None)
Quarter: 2010Q1

REPORT INFORMATION
  Report Type: 
  Country: None (occurrence: None)
  Receive Date: 20100112
  Receipt Date: 20100105
  Transmission Date: 20100710
  Serious: Yes (Other)
  Sender: FDA-Public Use
  Company Number: US-GENENTECH-295230

PATIENT
  Sex: Female
  Weight: 129 kg

DRUGS (9)
  1. XOLAIR [Suspect]
     Indication: ASTHMA
     Dosage: 300 MG, 1/MONTH
     Route: 058
     Dates: start: 20090414, end: 20091123
  2. SYMBICORT [Concomitant]
     Indication: ASTHMA
     Dosage: 2 PUFF, BID
  3. PULMICORT [Concomitant]
     Indication: ASTHMA
     Dosage: 1 PUFF, BID
  4. PRILOSEC [Concomitant]
     Indication: GASTROOESOPHAGEAL REFLUX DISEASE
     Dosage: UNK
  5. YAZ [Concomitant]
     Indication: DRUG USE FOR UNKNOWN INDICATION
     Dosage: UNK
  6. CONCOMITANT DRUG [Concomitant]
     Indication: DRUG USE FOR UNKNOWN INDICATION
  7. TOPROL-XL [Concomitant]
     Indication: DRUG USE FOR UNKNOWN INDICATION
     Dosage: 50 MG, UNK
  8. TOPROL-XL [Concomitant]
     Dosage: 25 MG, PRN
  9. ZYRTEC [Concomitant]
     Indication: HYPERSENSITIVITY
     Dosage: 10 MG, UNK

REACTIONS (5)
  - ASTHMA [None]
  - HYPOAESTHESIA ORAL [None]
  - PHARYNGEAL OEDEMA [None]
  - URTICARIA [None]
  - WHEEZING [None]
